FAERS Safety Report 17963437 (Version 1)
Quarter: 2020Q2

REPORT INFORMATION
  Report Type: Report from Study
  Country: None (occurrence: US)
  Receive Date: 20200630
  Receipt Date: 20200630
  Transmission Date: 20200714
  Serious: No
  Sender: FDA-Public Use
  Company Number: US-BIOVITRUM-2020US0520

PATIENT
  Sex: Female

DRUGS (1)
  1. KINERET [Suspect]
     Active Substance: ANAKINRA
     Indication: RHEUMATOID ARTHRITIS
     Route: 058
     Dates: start: 20190227

REACTIONS (31)
  - Dysphoria [Unknown]
  - Wrist deformity [Unknown]
  - C-reactive protein increased [Unknown]
  - Joint swelling [Unknown]
  - Sleep disorder [Unknown]
  - Haemoglobin decreased [Unknown]
  - Red blood cell sedimentation rate increased [Unknown]
  - Elbow deformity [Unknown]
  - Hip deformity [Unknown]
  - Hand deformity [Unknown]
  - Blood alkaline phosphatase increased [Unknown]
  - Musculoskeletal stiffness [Unknown]
  - Peripheral swelling [Unknown]
  - Neutrophil count increased [Unknown]
  - Dysphagia [Unknown]
  - Nervousness [Unknown]
  - Fatigue [Unknown]
  - Joint range of motion decreased [Unknown]
  - Musculoskeletal pain [Unknown]
  - Depression [Unknown]
  - Foot deformity [Unknown]
  - Injection site pain [Unknown]
  - Arthralgia [Unknown]
  - Swelling [Unknown]
  - Ankle deformity [Unknown]
  - Anxiety [Unknown]
  - Tenderness [Unknown]
  - Knee deformity [Unknown]
  - White blood cell count increased [Unknown]
  - Mean cell haemoglobin [Unknown]
  - Mean platelet volume decreased [Unknown]
